FAERS Safety Report 5360044-2 (Version None)
Quarter: 2007Q2

REPORT INFORMATION
  Report Type: 
  Country: None (occurrence: None)
  Receive Date: 20070618
  Receipt Date: 20070404
  Transmission Date: 20071010
  Serious: No
  Sender: FDA-Public Use
  Company Number: US-ASTRAZENECA-2007UW06714

PATIENT
  Age: 63 Year
  Sex: Female
  Weight: 64.4 kg

DRUGS (7)
  1. FASLODEX [Suspect]
     Indication: BREAST CANCER
     Route: 030
  2. ACTOS [Concomitant]
  3. ALTACE [Concomitant]
  4. AVALIDE [Concomitant]
  5. CADUET [Concomitant]
  6. BUPRIPRION [Concomitant]
  7. VICODIN [Concomitant]

REACTIONS (5)
  - ILL-DEFINED DISORDER [None]
  - INJECTION SITE PRURITUS [None]
  - INJECTION SITE SWELLING [None]
  - MYALGIA [None]
  - OEDEMA PERIPHERAL [None]
